FAERS Safety Report 5615861-8 (Version None)
Quarter: 2008Q1

REPORT INFORMATION
  Report Type: 
  Country: None (occurrence: None)
  Receive Date: 20080206
  Receipt Date: 20080122
  Transmission Date: 20080703
  Serious: Yes (Other)
  Sender: FDA-Public Use
  Company Number: US-AMGEN-US261436

PATIENT
  Sex: Male
  Weight: 70.4 kg

DRUGS (10)
  1. PROCRIT [Suspect]
     Indication: RENAL FAILURE CHRONIC
     Route: 065
     Dates: start: 20050101
  2. NEPHRO-CAPS [Concomitant]
     Route: 065
  3. FERROUS SULFATE TAB [Concomitant]
     Route: 065
  4. FLOMAX [Concomitant]
     Route: 065
  5. TRAMADOL HCL [Concomitant]
     Route: 065
  6. AVANDIA [Concomitant]
     Route: 065
  7. ATENOLOL [Concomitant]
     Route: 065
  8. ACETAMINOPHEN [Concomitant]
     Route: 065
  9. LIPITOR [Concomitant]
     Route: 065
  10. VITAMIN D [Concomitant]
     Route: 065

REACTIONS (2)
  - HAEMOGLOBIN DECREASED [None]
  - T-CELL LYMPHOMA [None]
